FAERS Safety Report 20132355 (Version 2)
Quarter: 2022Q1

REPORT INFORMATION
  Report Type: Spontaneous
  Country: CA (occurrence: CA)
  Receive Date: 20211130
  Receipt Date: 20220311
  Transmission Date: 20220423
  Serious: Yes (Other)
  Sender: FDA-Public Use
  Company Number: CA-SA-SAC20211126000948

PATIENT
  Age: 34 Year
  Sex: Female

DRUGS (4)
  1. LEFLUNOMIDE [Suspect]
     Active Substance: LEFLUNOMIDE
     Indication: Product used for unknown indication
     Dosage: UNK
     Route: 048
  2. METHOTREXATE [Concomitant]
     Active Substance: METHOTREXATE
     Indication: Product used for unknown indication
     Dosage: UNK
     Route: 065
  3. SULFASALAZINE [Concomitant]
     Active Substance: SULFASALAZINE
     Indication: Product used for unknown indication
     Dosage: UNK
     Route: 065
  4. CELEBREX [Concomitant]
     Active Substance: CELECOXIB
     Indication: Product used for unknown indication

REACTIONS (9)
  - General physical health deterioration [Unknown]
  - Hepatic steatosis [Unknown]
  - Inflammatory marker increased [Unknown]
  - Transaminases increased [Unknown]
  - General physical health deterioration [Unknown]
  - Inflammatory marker increased [Unknown]
  - Injection site pain [Unknown]
  - Hepatic steatosis [Unknown]
  - Transaminases increased [Unknown]
